FAERS Safety Report 5918926-6 (Version None)
Quarter: 2008Q4

REPORT INFORMATION
  Report Type: 
  Country: None (occurrence: None)
  Receive Date: 20081015
  Receipt Date: 20081014
  Transmission Date: 20090506
  Serious: Yes (Other)
  Sender: FDA-Public Use
  Company Number: RO-BRISTOL-MYERS SQUIBB COMPANY-14345847

PATIENT
  Age: 61 Year
  Sex: Female

DRUGS (2)
  1. SPRYCEL [Suspect]
     Indication: CHRONIC MYELOID LEUKAEMIA
     Dosage: DOSE REDUCED TO 50MG TWICE DAILY.
     Route: 048
     Dates: start: 20061201, end: 20070401
  2. PREDNISONE [Suspect]
     Dosage: DOSE REDUCED TO 20 MG IN APR-2007
     Dates: start: 20070201

REACTIONS (2)
  - CATARACT [None]
  - PLEURAL EFFUSION [None]
